FAERS Safety Report 6540054-X (Version None)
Quarter: 2009Q4

REPORT INFORMATION
  Report Type: 
  Country: None (occurrence: None)
  Receive Date: 20091230
  Receipt Date: 20091221
  Transmission Date: 20100525
  Serious: Yes (Other)
  Sender: FDA-Public Use
  Company Number: AEUSA200900336

PATIENT
  Age: 69 Year
  Sex: Female

DRUGS (1)
  1. IMMUNE GLOBULIN INTRAVENOUS (HUMAN) [Suspect]
     Indication: CHRONIC INFLAMMATORY DEMYELINATING POLYRADICULONEUROPATHY
     Dosage: 0.4 GM/ KG; QM; IV
     Route: 042

REACTIONS (7)
  - BLOOD PRESSURE INCREASED [None]
  - CEREBELLAR ARTERY OCCLUSION [None]
  - CEREBRAL INFARCTION [None]
  - DYSPHAGIA [None]
  - NAUSEA [None]
  - THROMBOTIC STROKE [None]
  - VOMITING [None]
